FAERS Safety Report 10735334 (Version 1)
Quarter: 2015Q1

REPORT INFORMATION
  Report Type: Spontaneous
  Country: US (occurrence: US)
  Receive Date: 20150125
  Receipt Date: 20150125
  Transmission Date: 20150721
  Serious: Yes (Life-Threatening)
  Sender: FDA-Public Use
  Company Number: US-JNJFOC-20150108378

PATIENT
  Age: 39 Year
  Sex: Female

DRUGS (2)
  1. APAP [Suspect]
     Active Substance: ACETAMINOPHEN
     Route: 048
  2. APAP [Suspect]
     Active Substance: ACETAMINOPHEN
     Indication: SUICIDE ATTEMPT
     Route: 048
     Dates: start: 20050823

REACTIONS (11)
  - Intentional overdose [Recovering/Resolving]
  - Renal failure [Recovering/Resolving]
  - Hepatotoxicity [Recovering/Resolving]
  - Prothrombin time prolonged [Recovering/Resolving]
  - Respiratory depression [Recovering/Resolving]
  - Blood bilirubin increased [Recovering/Resolving]
  - Lethargy [Recovering/Resolving]
  - Tachycardia [Recovering/Resolving]
  - Somnolence [Recovering/Resolving]
  - Transaminases increased [Recovering/Resolving]
  - Hepatic function abnormal [Recovering/Resolving]

NARRATIVE: CASE EVENT DATE: 20050823
